FAERS Safety Report 5331771-8 (Version None)
Quarter: 2007Q2

REPORT INFORMATION
  Report Type: 
  Country: None (occurrence: None)
  Receive Date: 20070522
  Receipt Date: 20070509
  Transmission Date: 20071010
  Serious: Yes (Hospitalization)
  Sender: FDA-Public Use
  Company Number: US-AMGEN-STX224160

PATIENT
  Sex: Female

DRUGS (2)
  1. ENBREL [Suspect]
     Indication: RHEUMATOID ARTHRITIS
     Route: 058
     Dates: start: 20040822
  2. METHOTREXATE [Concomitant]
     Route: 058
     Dates: start: 20010101

REACTIONS (8)
  - COUGH [None]
  - HALLUCINATION [None]
  - HERPES ZOSTER [None]
  - INSOMNIA [None]
  - KNEE ARTHROPLASTY [None]
  - PRURITUS [None]
  - RHINORRHOEA [None]
  - TOOTH INJURY [None]
